FAERS Safety Report 9814126 (Version 2)
Quarter: 2014Q1

REPORT INFORMATION
  Report Type: Spontaneous
  Country: US (occurrence: US)
  Receive Date: 20140113
  Receipt Date: 20140113
  Transmission Date: 20141002
  Serious: No
  Sender: FDA-Public Use
  Company Number: US-ASTELLAS-2013US011854

PATIENT
  Sex: Male

DRUGS (2)
  1. MYRBETRIQ [Suspect]
     Indication: POLLAKIURIA
     Dosage: 25 MG, UID/QD
     Route: 048
     Dates: start: 201303
  2. MYRBETRIQ [Suspect]
     Indication: PROSTATOMEGALY
     Dosage: 50 MG, UID/QD
     Route: 048

REACTIONS (2)
  - Off label use [Unknown]
  - Drug ineffective [Unknown]
